FAERS Safety Report 24314042 (Version 1)
Quarter: 2024Q3

REPORT INFORMATION
  Report Type: Other
  Country: US (occurrence: US)
  Receive Date: 20240912
  Receipt Date: 20240912
  Transmission Date: 20241016
  Serious: No
  Sender: SIGMA TAU
  Company Number: US-LEADIANT BIOSCIENCES, INC.-2024LBI000239

PATIENT
  Sex: Female

DRUGS (1)
  1. MATULANE [Suspect]
     Active Substance: PROCARBAZINE HYDROCHLORIDE
     Indication: Diffuse large B-cell lymphoma
     Dosage: 50 MILLIGRAMS, 3 CAPSULES (150 MG TOTAL) DAILY ON DAYS 1-7 DURING CYCLE 1,3 AND 5 ONLY
     Route: 048
     Dates: start: 20240604

REACTIONS (2)
  - Contusion [Unknown]
  - Diarrhoea [Unknown]
